FAERS Safety Report 20880754 (Version 1)
Quarter: 2022Q2

REPORT INFORMATION
  Report Type: Spontaneous
  Country: US (occurrence: US)
  Receive Date: 20220526
  Receipt Date: 20220526
  Transmission Date: 20220720
  Serious: No
  Sender: FDA-Public Use
  Company Number: US-RADIUS HEALTH INC.-2021US004386

PATIENT
  Age: 59 Year
  Sex: Female

DRUGS (6)
  1. TYMLOS [Suspect]
     Active Substance: ABALOPARATIDE
     Indication: Osteoporosis
     Dosage: 80 MICROGRAM, QD
     Route: 058
     Dates: start: 202009, end: 20210930
  2. WELLBUTRIN [Concomitant]
     Active Substance: BUPROPION HYDROCHLORIDE
     Indication: Product used for unknown indication
     Dosage: 300 MILLIGRAM, QD
  3. VALIUM [Concomitant]
     Active Substance: DIAZEPAM
     Indication: Product used for unknown indication
     Dosage: 0.5 MILLIGRAM, PRN
  4. AJOVY [Concomitant]
     Active Substance: FREMANEZUMAB-VFRM
     Indication: Migraine
     Dosage: ONCE A MONTH
  5. MAGNESIUM [Concomitant]
     Active Substance: MAGNESIUM
     Indication: Product used for unknown indication
     Dosage: BID
  6. VITAMIN D NOS [Concomitant]
     Active Substance: VITAMIN D NOS
     Indication: Product used for unknown indication

REACTIONS (10)
  - Flushing [Recovered/Resolved]
  - Erythema [Recovered/Resolved]
  - Blood pressure increased [Recovered/Resolved]
  - Nervousness [Recovered/Resolved]
  - Constipation [Not Recovered/Not Resolved]
  - Back pain [Recovered/Resolved]
  - Palpitations [Recovered/Resolved]
  - Heart rate increased [Recovered/Resolved]
  - Dizziness [Recovered/Resolved]
  - Product dose omission issue [Not Recovered/Not Resolved]

NARRATIVE: CASE EVENT DATE: 20200901
